FAERS Safety Report 23203829 (Version 1)
Quarter: 2023Q4

REPORT INFORMATION
  Report Type: Spontaneous
  Country: US (occurrence: US)
  Receive Date: 20231120
  Receipt Date: 20231120
  Transmission Date: 20240110
  Serious: No
  Sender: FDA-Public Use
  Company Number: US-CIPLA LTD.-2023US00690

PATIENT

DRUGS (3)
  1. METOPROLOL [Suspect]
     Active Substance: METOPROLOL
     Indication: Aortic aneurysm
     Dosage: 50 MILLIGRAM, QD (1 TABLET ONCE AT NIGHT)
     Route: 048
     Dates: start: 202204, end: 202204
  2. LOSARTAN [Concomitant]
     Active Substance: LOSARTAN
     Indication: Aortic aneurysm
     Dosage: 50 MILLIGRAM, QD (1 TABLET IN THE MORNING)
     Route: 065
  3. ROSUVASTATIN [Concomitant]
     Active Substance: ROSUVASTATIN
     Indication: Blood cholesterol increased
     Dosage: 20 MILLIGRAM, QD (1 TABLET A DAY AT NIGHT)
     Route: 065
     Dates: start: 2022

REACTIONS (1)
  - Dry throat [Recovered/Resolved]

NARRATIVE: CASE EVENT DATE: 20220401
